FAERS Safety Report 10064276 (Version 1)
Quarter: 2013Q4

REPORT INFORMATION
  Report Type: Spontaneous
  Country: FR (occurrence: None)
  Receive Date: 20131121
  Receipt Date: 20131121
  Transmission Date: 20140711
  Serious: Yes (Life-Threatening)
  Sender: FDA-Public Use
  Company Number: 2014953

PATIENT
  Age: 17 Year
  Sex: Male

DRUGS (2)
  1. ISOPROTERENOL HYDROCHLORIDE [Suspect]
     Indication: PRODUCT USED FOR UNKNOWN INDICATION
     Dosage: NOT OTHERWISE SPECIFIED
     Route: 042
     Dates: start: 20130912
  2. SUXAMETHONIUM [Suspect]
     Dosage: NOT OTHERWISE SPECIFIED
     Route: 042
     Dates: start: 20130912

REACTIONS (4)
  - Respiratory depression [None]
  - Respiratory arrest [None]
  - Wrong drug administered [None]
  - Mental disorder [None]
